FAERS Safety Report 15491483 (Version 10)
Quarter: 2019Q3

REPORT INFORMATION
  Report Type: Report from Study
  Country: US (occurrence: US)
  Receive Date: 20181012
  Receipt Date: 20190909
  Transmission Date: 20191004
  Serious: Yes (Hospitalization, Other)
  Sender: FDA-Public Use
  Company Number: US-BRISTOL-MYERS SQUIBB COMPANY-BMS-2018-092084

PATIENT
  Age: 74 Year
  Sex: Male
  Weight: 79.37 kg

DRUGS (9)
  1. AMLODIPINE [Concomitant]
     Active Substance: AMLODIPINE BESYLATE
     Indication: PRODUCT USED FOR UNKNOWN INDICATION
     Dosage: UNK
     Route: 065
  2. CORTISONE [Concomitant]
     Active Substance: CORTISONE
     Indication: PRODUCT USED FOR UNKNOWN INDICATION
     Dosage: UNK
     Route: 065
  3. NIVOLUMAB [Suspect]
     Active Substance: NIVOLUMAB
     Indication: PRODUCT USED FOR UNKNOWN INDICATION
     Dosage: UNK, Q4WK
     Route: 042
  4. NIVOLUMAB [Suspect]
     Active Substance: NIVOLUMAB
     Indication: RENAL CELL CARCINOMA
     Dosage: UNK, Q3WK
     Route: 042
     Dates: start: 20180803
  5. FISH OIL [Concomitant]
     Active Substance: FISH OIL
     Indication: PRODUCT USED FOR UNKNOWN INDICATION
     Dosage: UNK
     Route: 065
  6. HCTZ [Concomitant]
     Active Substance: HYDROCHLOROTHIAZIDE
     Indication: PRODUCT USED FOR UNKNOWN INDICATION
     Dosage: UNK
     Route: 065
  7. IPILIMUMAB [Suspect]
     Active Substance: IPILIMUMAB
     Indication: RENAL CELL CARCINOMA
     Dosage: UNK, Q3WK
     Route: 042
     Dates: start: 20180803
  8. ACETYLSALICYLIC ACID [Concomitant]
     Active Substance: ASPIRIN
     Indication: PRODUCT USED FOR UNKNOWN INDICATION
     Dosage: UNK, QD
     Route: 065
  9. TAMSULOSIN [Concomitant]
     Active Substance: TAMSULOSIN
     Indication: PRODUCT USED FOR UNKNOWN INDICATION
     Dosage: UNK
     Route: 065

REACTIONS (26)
  - Diarrhoea [Unknown]
  - Dysphonia [Unknown]
  - Headache [Recovered/Resolved]
  - Joint injury [Recovering/Resolving]
  - Arthropathy [Recovering/Resolving]
  - Blood potassium decreased [Unknown]
  - Pain [Unknown]
  - Pollakiuria [Unknown]
  - Neoplasm prostate [Not Recovered/Not Resolved]
  - Memory impairment [Unknown]
  - Visual field defect [Unknown]
  - Renal disorder [Unknown]
  - Skin cancer [Unknown]
  - Urinary incontinence [Unknown]
  - Asthenia [Unknown]
  - Muscle atrophy [Unknown]
  - Musculoskeletal discomfort [Unknown]
  - Appetite disorder [Recovering/Resolving]
  - Adrenal disorder [Unknown]
  - Skin disorder [Unknown]
  - Speech disorder [Unknown]
  - Weight decreased [Unknown]
  - Constipation [Unknown]
  - Dysphagia [Unknown]
  - Fatigue [Recovering/Resolving]
  - Rash pruritic [Recovered/Resolved]

NARRATIVE: CASE EVENT DATE: 201901
